FAERS Safety Report 5688130-8 (Version None)
Quarter: 2008Q1

REPORT INFORMATION
  Report Type: 
  Country: None (occurrence: None)
  Receive Date: 20080327
  Receipt Date: 20080319
  Transmission Date: 20080703
  Serious: Yes (Other)
  Sender: FDA-Public Use
  Company Number: 2008006866

PATIENT
  Sex: Female

DRUGS (1)
  1. LUBRIDERM INTENSE DRY SKIN REPAIR BODY LOTION [Suspect]
     Dosage: ONCE, TOPICAL
     Route: 061
     Dates: start: 20080317, end: 20080317

REACTIONS (4)
  - CAUSTIC INJURY [None]
  - ERYTHEMA [None]
  - SKIN EXFOLIATION [None]
  - SKIN TIGHTNESS [None]
